FAERS Safety Report 16379649 (Version 5)
Quarter: 2019Q3

REPORT INFORMATION
  Report Type: Spontaneous
  Country: JP (occurrence: JP)
  Receive Date: 20190531
  Receipt Date: 20190919
  Transmission Date: 20191004
  Serious: Yes (Hospitalization, Other)
  Sender: FDA-Public Use
  Company Number: JP-ELI_LILLY_AND_COMPANY-JP201905012956AA

PATIENT
  Sex: Female
  Weight: 52 kg

DRUGS (17)
  1. MYONAL (MYO) [Concomitant]
     Active Substance: EPERISONE HYDROCHLORIDE
     Dosage: 50 MG, UNKNOWN
  2. ALISMA PLANTAGO-AQUATICA VAR. ORIENTALE TUBER [Concomitant]
     Dosage: 2.5 MG, UNKNOWN
  3. IPD [Concomitant]
     Active Substance: SUPLATAST TOSILATE
  4. TRAMADOL + ACETAMINOFEN [Concomitant]
     Active Substance: ACETAMINOPHEN\TRAMADOL
  5. MIYA-BM [Concomitant]
     Active Substance: CLOSTRIDIUM BUTYRICUM SPORES STRAIN M-55
     Dosage: UNK
  6. LOPERAMIDE HYDROCHLORIDE. [Concomitant]
     Active Substance: LOPERAMIDE HYDROCHLORIDE
     Dosage: 1 MG, UNKNOWN
  7. POTASSIUM CITRATE;SODIUM CITRATE DIHYDRATE [Concomitant]
  8. VERZENIO [Suspect]
     Active Substance: ABEMACICLIB
     Indication: BREAST CANCER RECURRENT
     Dosage: 100 MG, BID
     Route: 048
     Dates: start: 20181213, end: 201905
  9. CILNIDIPINE [Concomitant]
     Active Substance: CILNIDIPINE
     Dosage: 10 MG, UNKNOWN
  10. BISOPROLOL FUMARATE. [Concomitant]
     Active Substance: BISOPROLOL FUMARATE
     Dosage: 5 MG, UNKNOWN
  11. CARBAZOCHROME SODIUM SULFONATE [Concomitant]
     Active Substance: CARBAZOCHROME SODIUM SULFONATE
     Dosage: 30 MG, UNKNOWN
  12. LYRICA [Concomitant]
     Active Substance: PREGABALIN
     Dosage: 25 MG, UNKNOWN
  13. NAPROXEN SODIUM. [Concomitant]
     Active Substance: NAPROXEN SODIUM
     Dosage: 100 MG, UNKNOWN
  14. LOSARTAN POTASSIUM. [Concomitant]
     Active Substance: LOSARTAN POTASSIUM
     Dosage: 50 MG, UNKNOWN
  15. TRANSAMIN [Concomitant]
     Active Substance: TRANEXAMIC ACID
     Dosage: 250 MG, UNKNOWN
  16. DENOTAS [Concomitant]
     Active Substance: CALCIUM CARBONATE\CHOLECALCIFEROL\MAGNESIUM CARBONATE
  17. DOXAZOSIN [Concomitant]
     Active Substance: DOXAZOSIN MESYLATE
     Dosage: 1 MG, UNKNOWN

REACTIONS (2)
  - Cardiac failure [Unknown]
  - Interstitial lung disease [Recovering/Resolving]

NARRATIVE: CASE EVENT DATE: 20190502
